FAERS Safety Report 25099339 (Version 3)
Quarter: 2025Q3

REPORT INFORMATION
  Report Type: Spontaneous
  Country: US (occurrence: US)
  Receive Date: 20250320
  Receipt Date: 20250723
  Transmission Date: 20251020
  Serious: No
  Sender: ELI LILLY AND COMPANY
  Company Number: US-ELI_LILLY_AND_COMPANY-US202503017068

PATIENT
  Age: 73 Year
  Sex: Female

DRUGS (27)
  1. FORTEO [Suspect]
     Active Substance: TERIPARATIDE
     Indication: Product used for unknown indication
     Route: 065
     Dates: start: 202401
  2. FORTEO [Suspect]
     Active Substance: TERIPARATIDE
     Indication: Product used for unknown indication
     Route: 065
     Dates: start: 202401
  3. FORTEO [Suspect]
     Active Substance: TERIPARATIDE
     Indication: Product used for unknown indication
     Route: 065
     Dates: start: 202401
  4. FORTEO [Suspect]
     Active Substance: TERIPARATIDE
     Indication: Product used for unknown indication
     Route: 065
     Dates: start: 202401
  5. FORTEO [Suspect]
     Active Substance: TERIPARATIDE
     Indication: Product used for unknown indication
     Route: 065
     Dates: start: 202401
  6. FORTEO [Suspect]
     Active Substance: TERIPARATIDE
     Indication: Product used for unknown indication
     Route: 065
     Dates: start: 202401
  7. FORTEO [Suspect]
     Active Substance: TERIPARATIDE
     Indication: Product used for unknown indication
     Route: 065
     Dates: start: 202401
  8. FORTEO [Suspect]
     Active Substance: TERIPARATIDE
     Indication: Product used for unknown indication
     Route: 065
     Dates: start: 202401
  9. FORTEO [Suspect]
     Active Substance: TERIPARATIDE
     Indication: Product used for unknown indication
     Route: 065
     Dates: start: 202401
  10. FORTEO [Suspect]
     Active Substance: TERIPARATIDE
     Indication: Product used for unknown indication
     Route: 065
     Dates: start: 202401
  11. FORTEO [Suspect]
     Active Substance: TERIPARATIDE
     Route: 065
  12. FORTEO [Suspect]
     Active Substance: TERIPARATIDE
     Route: 065
  13. FORTEO [Suspect]
     Active Substance: TERIPARATIDE
     Route: 065
  14. FORTEO [Suspect]
     Active Substance: TERIPARATIDE
     Route: 065
  15. FORTEO [Suspect]
     Active Substance: TERIPARATIDE
     Route: 065
  16. FORTEO [Suspect]
     Active Substance: TERIPARATIDE
     Route: 065
  17. FORTEO [Suspect]
     Active Substance: TERIPARATIDE
     Route: 065
  18. FORTEO [Suspect]
     Active Substance: TERIPARATIDE
     Route: 065
  19. FORTEO [Suspect]
     Active Substance: TERIPARATIDE
     Route: 065
  20. FORTEO [Suspect]
     Active Substance: TERIPARATIDE
     Route: 065
  21. FORTEO [Suspect]
     Active Substance: TERIPARATIDE
     Route: 065
  22. FORTEO [Suspect]
     Active Substance: TERIPARATIDE
     Route: 065
  23. FORTEO [Suspect]
     Active Substance: TERIPARATIDE
     Route: 065
  24. FORTEO [Suspect]
     Active Substance: TERIPARATIDE
     Route: 065
  25. FORTEO [Suspect]
     Active Substance: TERIPARATIDE
     Route: 065
  26. FORTEO [Suspect]
     Active Substance: TERIPARATIDE
     Route: 065
  27. FORTEO [Suspect]
     Active Substance: TERIPARATIDE
     Route: 065

REACTIONS (1)
  - Underdose [Unknown]
